FAERS Safety Report 8390285-1 (Version None)
Quarter: 2012Q2

REPORT INFORMATION
  Report Type: 
  Country: None (occurrence: None)
  Receive Date: 20120518
  Receipt Date: 20120509
  Transmission Date: 20120825
  Serious: Yes (Hospitalization)
  Sender: FDA-Public Use
  Company Number: 2012SP025281

PATIENT
  Sex: Male
  Weight: 71 kg

DRUGS (7)
  1. BOCEPREVIR (SCH-503034) [Suspect]
     Indication: HEPATITIS C
  2. PANTOPRAZOLE [Concomitant]
  3. PEGINTERFERON ALFA-2A [Suspect]
     Indication: HEPATITIS C
     Dosage: 80 MCG;QW;SC
     Route: 058
     Dates: start: 20111101
  4. COPEGUS [Suspect]
     Indication: HEPATITIS C
     Dosage: 400 MG;BID;PO
     Route: 048
     Dates: start: 20111101
  5. LACTULOSE [Concomitant]
  6. SPIROCOMP [Concomitant]
  7. PROPRANOLOL HCL [Concomitant]

REACTIONS (1)
  - HEPATIC ENCEPHALOPATHY [None]
